FAERS Safety Report 6532797-9 (Version None)
Quarter: 2010Q1

REPORT INFORMATION
  Report Type: 
  Country: None (occurrence: None)
  Receive Date: 20100111
  Receipt Date: 20100108
  Transmission Date: 20100710
  Serious: Yes (Death, Other)
  Sender: FDA-Public Use
  Company Number: PHHY2009NZ36890

PATIENT
  Sex: Female

DRUGS (7)
  1. CLOZARIL [Suspect]
     Indication: SCHIZOPHRENIA
     Dosage: 6.25 MG NOCTE
     Route: 048
     Dates: start: 20041109, end: 20090811
  2. CLOZARIL [Suspect]
     Indication: DEMENTIA
  3. PAROXETINE HCL [Concomitant]
     Indication: DEPRESSION
     Dosage: 20 MG MANE
  4. SINEMET [Concomitant]
     Indication: PARKINSON'S DISEASE
     Dosage: 25 / 100 TDS
  5. FRUSEMIDE [Concomitant]
     Indication: CARDIAC FAILURE CONGESTIVE
     Dosage: 40 MG MANE
  6. COLOXYL [Concomitant]
     Dosage: ONCE OR TWICE DAILY
  7. SENNA [Concomitant]
     Indication: CONSTIPATION
     Dosage: ONCE OR TWICE DAILY

REACTIONS (6)
  - APHAGIA [None]
  - COMMUNICATION DISORDER [None]
  - DEMENTIA [None]
  - IMMOBILE [None]
  - INCONTINENCE [None]
  - NEUTROPHILIA [None]
